FAERS Safety Report 9034793 (Version 1)
Quarter: 2013Q1

REPORT INFORMATION
  Report Type: Spontaneous
  Country: JP (occurrence: None)
  Receive Date: 20130118
  Receipt Date: 20130118
  Transmission Date: 20140127
  Serious: Yes (Hospitalization, Other)
  Sender: FDA-Public Use
  Company Number: 2013P1000452

PATIENT
  Age: 3 Year
  Sex: Female

DRUGS (6)
  1. DEXAMETHASONE [Suspect]
     Indication: ACUTE LYMPHOCYTIC LEUKAEMIA
     Route: 048
  2. VINCRISTINE [Suspect]
     Indication: ACUTE LYMPHOCYTIC LEUKAEMIA
     Route: 042
  3. 6-MERCAPTOPURINE [Concomitant]
  4. METHOTREXATE [Concomitant]
  5. IMMUNOGLOBULIN [Concomitant]
  6. SULFAMETHOXAZOLE/ TRIMETHOPRIM [Concomitant]

REACTIONS (2)
  - Pneumocystis jirovecii pneumonia [None]
  - Cytomegalovirus chorioretinitis [None]
